FAERS Safety Report 7883926-6 (Version None)
Quarter: 2011Q4

REPORT INFORMATION
  Report Type: 
  Country: None (occurrence: None)
  Receive Date: 20111102
  Receipt Date: 20111026
  Transmission Date: 20120403
  Serious: No
  Sender: FDA-Public Use
  Company Number: US-JNJFOC-20111012258

PATIENT
  Age: 15 Year
  Sex: Male
  Weight: 95.26 kg

DRUGS (2)
  1. INVEGA SUSTENNA [Suspect]
     Indication: PSYCHOTIC DISORDER
     Route: 030
     Dates: start: 20110301
  2. ADDERALL 5 [Concomitant]
     Indication: DISTURBANCE IN ATTENTION
     Route: 065

REACTIONS (4)
  - FEAR [None]
  - PARANOIA [None]
  - THERAPEUTIC RESPONSE DECREASED [None]
  - TOBACCO USER [None]
